FAERS Safety Report 12572563 (Version 3)
Quarter: 2016Q3

REPORT INFORMATION
  Report Type: Report from Study
  Country: GB (occurrence: GB)
  Receive Date: 20160720
  Receipt Date: 20160909
  Transmission Date: 20161109
  Serious: Yes (Hospitalization)
  Sender: FDA-Public Use
  Company Number: GB-ASTRAZENECA-2016SE75972

PATIENT
  Age: 23983 Day
  Sex: Female

DRUGS (24)
  1. CLARITHROMYCIN. [Concomitant]
     Active Substance: CLARITHROMYCIN
     Indication: LOWER RESPIRATORY TRACT INFECTION
     Route: 048
     Dates: start: 20160627, end: 20160707
  2. AZD2281 [Suspect]
     Active Substance: OLAPARIB
     Indication: OVARIAN CANCER STAGE III
     Route: 048
     Dates: start: 20151218, end: 20160115
  3. AZD2281 [Suspect]
     Active Substance: OLAPARIB
     Indication: OVARIAN CANCER STAGE III
     Route: 048
     Dates: start: 20160506, end: 20160603
  4. TIMOPTAL EYEDROPS [Concomitant]
     Indication: GLAUCOMA
     Route: 047
  5. PARACETAMOL [Concomitant]
     Active Substance: ACETAMINOPHEN
     Indication: PYREXIA
     Dosage: 1.0G AS REQUIRED
     Route: 048
     Dates: start: 20160202
  6. AZD2281 [Suspect]
     Active Substance: OLAPARIB
     Indication: OVARIAN CANCER STAGE III
     Route: 048
     Dates: start: 20160311, end: 20160408
  7. AZD2281 [Suspect]
     Active Substance: OLAPARIB
     Indication: OVARIAN CANCER STAGE III
     Route: 048
     Dates: start: 20160408, end: 20160506
  8. AZD2281 [Suspect]
     Active Substance: OLAPARIB
     Indication: OVARIAN CANCER STAGE III
     Route: 048
     Dates: start: 20160603
  9. LATANIPROST EYEDROPS [Concomitant]
     Indication: GLAUCOMA
     Route: 047
  10. PARACETAMOL [Concomitant]
     Active Substance: ACETAMINOPHEN
     Indication: HEADACHE
     Dosage: 1.0G AS REQUIRED
     Route: 048
     Dates: start: 20151227, end: 20160108
  11. PARACETAMOL [Concomitant]
     Active Substance: ACETAMINOPHEN
     Indication: HEADACHE
     Dosage: 1.0G AS REQUIRED
     Route: 048
     Dates: start: 20160202
  12. LEMSIP [Concomitant]
     Active Substance: ACETAMINOPHEN\ASCORBIC ACID\PHENYLEPHRINE HYDROCHLORIDE\SODIUM CITRATE
     Indication: INFLUENZA LIKE ILLNESS
     Dosage: 1 SACHET AS REQUIRED
     Route: 048
     Dates: start: 20151227, end: 20160108
  13. AMOXICILLIN. [Concomitant]
     Active Substance: AMOXICILLIN
     Indication: LOWER RESPIRATORY TRACT INFECTION
     Route: 048
     Dates: start: 20160620, end: 20160625
  14. AZD2281 [Suspect]
     Active Substance: OLAPARIB
     Indication: OVARIAN CANCER STAGE III
     Route: 048
     Dates: start: 20160115, end: 20160212
  15. PARACETAMOL [Concomitant]
     Active Substance: ACETAMINOPHEN
     Indication: INFLUENZA LIKE ILLNESS
     Dosage: 1.0G AS REQUIRED
     Route: 048
     Dates: start: 20151227, end: 20160108
  16. LEMSIP [Concomitant]
     Active Substance: ACETAMINOPHEN\ASCORBIC ACID\PHENYLEPHRINE HYDROCHLORIDE\SODIUM CITRATE
     Indication: NASAL CONGESTION
     Dosage: 1 SACHET AS REQUIRED
     Route: 048
     Dates: start: 20151227, end: 20160108
  17. LEMSIP [Concomitant]
     Active Substance: ACETAMINOPHEN\ASCORBIC ACID\PHENYLEPHRINE HYDROCHLORIDE\SODIUM CITRATE
     Indication: INFLUENZA LIKE ILLNESS
     Dosage: 1 SACHET AS REQUIRED
     Route: 048
     Dates: start: 20160530
  18. PARACETAMOL [Concomitant]
     Active Substance: ACETAMINOPHEN
     Indication: INFLUENZA LIKE ILLNESS
     Dosage: 1.0G AS REQUIRED
     Route: 048
     Dates: start: 20160202
  19. PARACETAMOL [Concomitant]
     Active Substance: ACETAMINOPHEN
     Indication: PYREXIA
     Dosage: 1.0G AS REQUIRED
     Route: 048
     Dates: start: 20151227, end: 20160108
  20. PARACETAMOL [Concomitant]
     Active Substance: ACETAMINOPHEN
     Indication: HEADACHE
     Dosage: 1.0G AS REQUIRED
     Route: 048
     Dates: start: 20160706
  21. LEMSIP [Concomitant]
     Active Substance: ACETAMINOPHEN\ASCORBIC ACID\PHENYLEPHRINE HYDROCHLORIDE\SODIUM CITRATE
     Indication: NASAL CONGESTION
     Dosage: 1 SACHET AS REQUIRED
     Route: 048
     Dates: start: 20160530
  22. AZD2281 [Suspect]
     Active Substance: OLAPARIB
     Indication: OVARIAN CANCER STAGE III
     Route: 048
     Dates: start: 20160212, end: 20160311
  23. PARACETAMOL [Concomitant]
     Active Substance: ACETAMINOPHEN
     Indication: INFLUENZA LIKE ILLNESS
     Dosage: 1.0G AS REQUIRED
     Route: 048
     Dates: start: 20160706
  24. PARACETAMOL [Concomitant]
     Active Substance: ACETAMINOPHEN
     Indication: PYREXIA
     Dosage: 1.0G AS REQUIRED
     Route: 048
     Dates: start: 20160706

REACTIONS (1)
  - Lower respiratory tract infection [Recovered/Resolved]

NARRATIVE: CASE EVENT DATE: 20160626
